FAERS Safety Report 4407835-X (Version None)
Quarter: 2004Q3

REPORT INFORMATION
  Report Type: 
  Country: None (occurrence: None)
  Receive Date: 20040726
  Receipt Date: 20040709
  Transmission Date: 20050211
  Serious: Yes (Other)
  Sender: FDA-Public Use
  Company Number: GB-GLAXOSMITHKLINE-B0338613A

PATIENT
  Age: 21 Year
  Sex: Female

DRUGS (2)
  1. ACYCLOVIR [Suspect]
     Indication: HERPES SIMPLEX
     Dosage: 200MG PER DAY
     Route: 048
     Dates: start: 20040406
  2. MICROGYNON [Concomitant]
     Indication: CONTRACEPTION
     Dosage: 1UNIT PER DAY
     Route: 048
     Dates: start: 20010417

REACTIONS (5)
  - ABDOMINAL PAIN UPPER [None]
  - DYSPEPSIA [None]
  - HAEMATEMESIS [None]
  - ULCER HAEMORRHAGE [None]
  - VOMITING [None]
